FAERS Safety Report 6574039-4 (Version None)
Quarter: 2010Q1

REPORT INFORMATION
  Report Type: 
  Country: None (occurrence: None)
  Receive Date: 20100208
  Receipt Date: 20100125
  Transmission Date: 20100710
  Serious: Yes (Other)
  Sender: FDA-Public Use
  Company Number: JP-ASTRAZENECA-2009SE32264

PATIENT
  Age: 9560 Day
  Sex: Male

DRUGS (11)
  1. MEROPEN [Suspect]
     Indication: MENINGITIS BACTERIAL
     Route: 041
     Dates: start: 20080917, end: 20081004
  2. VANCOMYCIN [Suspect]
     Indication: MENINGITIS BACTERIAL
     Route: 041
     Dates: start: 20080918, end: 20080924
  3. VANCOMYCIN [Suspect]
     Route: 041
     Dates: start: 20080925, end: 20081004
  4. DECADRON [Concomitant]
     Indication: MENINGITIS
     Route: 041
     Dates: start: 20080918, end: 20080920
  5. DECADRON [Concomitant]
     Dosage: ONE DOSE WITH 8MG/DAILY
     Route: 041
  6. LOXONIN [Concomitant]
     Route: 048
     Dates: start: 20080910, end: 20080911
  7. METILON [Concomitant]
     Indication: ANTIPYRESIS
     Route: 030
     Dates: start: 20080916
  8. GLYCEROL 2.6% [Concomitant]
     Indication: MENINGITIS
     Route: 041
     Dates: start: 20080917
  9. GRAN [Concomitant]
     Indication: WHITE BLOOD CELL COUNT DECREASED
     Dosage: 1 DOSAGE FORM/DAY
     Route: 058
     Dates: start: 20081007
  10. PACETCOOL [Concomitant]
     Indication: INFLAMMATION
     Route: 041
     Dates: start: 20081009, end: 20081015
  11. RASENAZOLIN [Concomitant]
     Indication: INFECTION PROPHYLAXIS
     Route: 041
     Dates: start: 20080909, end: 20080910

REACTIONS (3)
  - LIVER DISORDER [None]
  - TOXIC SKIN ERUPTION [None]
  - WHITE BLOOD CELL COUNT DECREASED [None]
